FAERS Safety Report 9500216 (Version 1)
Quarter: 2013Q3

REPORT INFORMATION
  Report Type: Spontaneous
  Country: CN (occurrence: CN)
  Receive Date: 20130905
  Receipt Date: 20130905
  Transmission Date: 20140515
  Serious: Yes (Death, Other)
  Sender: FDA-Public Use
  Company Number: CN-GENZYME-CERZ-1003150

PATIENT
  Age: 7 Year
  Sex: Male
  Weight: 20 kg

DRUGS (2)
  1. CEREZYME [Suspect]
     Indication: GAUCHER^S DISEASE
     Dosage: 80 U/KG, PER MONTH
     Route: 042
     Dates: start: 200708
  2. CEREZYME [Suspect]
     Dosage: 5 U/KG, UNK
     Route: 042
     Dates: end: 20130817

REACTIONS (5)
  - Death [Fatal]
  - Convulsion [Unknown]
  - Loss of consciousness [Unknown]
  - Hyperpyrexia [Unknown]
  - Bone pain [Unknown]
